FAERS Safety Report 23104500 (Version 1)
Quarter: 2023Q4

REPORT INFORMATION
  Report Type: Spontaneous
  Country: US (occurrence: US)
  Receive Date: 20231025
  Receipt Date: 20231025
  Transmission Date: 20240109
  Serious: No
  Sender: FDA-Public Use
  Company Number: US-Nobelpharma America, LLC-NPA-2023-02053

PATIENT
  Age: 7 Year
  Sex: Female

DRUGS (1)
  1. HYFTOR [Suspect]
     Active Substance: SIROLIMUS
     Indication: Nail hypertrophy
     Dosage: APPLY TO PAINFUL SOLES OF FEET TWICE DAILY
     Dates: start: 20230616

REACTIONS (3)
  - Application site pain [Unknown]
  - Application site erythema [Unknown]
  - Off label use [None]

NARRATIVE: CASE EVENT DATE: 20230901
